FAERS Safety Report 23890332 (Version 2)
Quarter: 2024Q2

REPORT INFORMATION
  Report Type: Spontaneous
  Country: US (occurrence: US)
  Receive Date: 20240523
  Receipt Date: 20240610
  Transmission Date: 20240716
  Serious: Yes (Death, Hospitalization, Other)
  Sender: FDA-Public Use
  Company Number: US-UROGEN PHARMA LTD.-2024-UGN-000056

PATIENT

DRUGS (6)
  1. JELMYTO [Suspect]
     Active Substance: MITOMYCIN
     Indication: Transitional cell cancer of the renal pelvis and ureter
     Dosage: 6 CC (INSTILLATION)
     Dates: start: 20240227, end: 20240227
  2. JELMYTO [Suspect]
     Active Substance: MITOMYCIN
     Dosage: 14 CC (INSTILLATION)
     Dates: start: 20240312, end: 20240312
  3. JELMYTO [Suspect]
     Active Substance: MITOMYCIN
     Dosage: 14 CC (INSTILLATION)
     Dates: start: 20240319, end: 20240319
  4. JELMYTO [Suspect]
     Active Substance: MITOMYCIN
     Dosage: 15 CC (INSTILLATION)
     Dates: start: 20240326, end: 20240326
  5. XARELTO [Concomitant]
     Active Substance: RIVAROXABAN
     Indication: Product used for unknown indication
     Dosage: UNK
     Route: 065
  6. ACETAMINOPHEN [Concomitant]
     Active Substance: ACETAMINOPHEN
     Indication: Pain
     Dosage: 500 MILLIGRAM, Q6H (EACH 6 HR), 2 TABLETS, AS NEEDED
     Route: 048

REACTIONS (5)
  - Death [Fatal]
  - Instillation site haemorrhage [Recovering/Resolving]
  - Adverse event [Unknown]
  - Myelosuppression [Unknown]
  - Acute kidney injury [Recovered/Resolved]

NARRATIVE: CASE EVENT DATE: 20240101
